FAERS Safety Report 9461210 (Version 1)
Quarter: 2013Q3

REPORT INFORMATION
  Report Type: Spontaneous
  Country: US (occurrence: None)
  Receive Date: 20130814
  Receipt Date: 20130814
  Transmission Date: 20140515
  Serious: No
  Sender: FDA-Public Use
  Company Number: None

PATIENT
  Age: 54 Year
  Sex: Female

DRUGS (2)
  1. LISINOPRIL [Suspect]
     Indication: BLOOD PRESSURE
     Dosage: 1 TABLET  ONCE DAILY  BY MOUTH
     Route: 048
     Dates: start: 20130810, end: 20130813
  2. ATENOLOL [Concomitant]

REACTIONS (3)
  - Dizziness [None]
  - Headache [None]
  - Tinnitus [None]
